FAERS Safety Report 9446471 (Version 1)
Quarter: 2013Q3

REPORT INFORMATION
  Report Type: Spontaneous
  Country: US (occurrence: US)
  Receive Date: 20130807
  Receipt Date: 20130807
  Transmission Date: 20140515
  Serious: No
  Sender: FDA-Public Use
  Company Number: US-AMGEN-USASP2013049732

PATIENT
  Age: 42 Year
  Sex: Female

DRUGS (3)
  1. ENBREL [Suspect]
     Indication: RHEUMATOID ARTHRITIS
     Dosage: 50 MG, QWK
     Route: 065
     Dates: start: 20080915
  2. ENBREL [Suspect]
  3. METHOTREXATE [Suspect]
     Dosage: UNK

REACTIONS (5)
  - Lung disorder [Recovered/Resolved]
  - Injury associated with device [Recovered/Resolved]
  - Musculoskeletal stiffness [Recovered/Resolved]
  - Injection site swelling [Recovered/Resolved]
  - Injection site hypersensitivity [Recovered/Resolved]
